FAERS Safety Report 14193224 (Version 1)
Quarter: 2017Q4

REPORT INFORMATION
  Report Type: Spontaneous
  Country: US (occurrence: US)
  Receive Date: 20171115
  Receipt Date: 20171115
  Transmission Date: 20180321
  Serious: No
  Sender: FDA-Public Use
  Company Number: US-BAUSCH-BL-2016-031424

PATIENT
  Sex: Female

DRUGS (2)
  1. TETRABENAZINE. [Suspect]
     Active Substance: TETRABENAZINE
     Indication: CHOREA
     Route: 048
     Dates: start: 201611
  2. XENAZINE [Suspect]
     Active Substance: TETRABENAZINE
     Indication: CHOREA
     Route: 048
     Dates: start: 201507

REACTIONS (2)
  - Speech disorder [Not Recovered/Not Resolved]
  - Movement disorder [Not Recovered/Not Resolved]
